FAERS Safety Report 8036582-0 (Version None)
Quarter: 2012Q1

REPORT INFORMATION
  Report Type: 
  Country: None (occurrence: None)
  Receive Date: 20120109
  Receipt Date: 20120102
  Transmission Date: 20120608
  Serious: Yes (Hospitalization)
  Sender: FDA-Public Use
  Company Number: 2011SP045748

PATIENT
  Age: 52 Year
  Sex: Female

DRUGS (2)
  1. NEO-MERCAZOLE TAB [Suspect]
     Indication: BASEDOW'S DISEASE
     Dosage: 1.5 DF;QD;PO
     Route: 048
     Dates: start: 20110501, end: 20110816
  2. DESLORATADINE [Suspect]
     Indication: PRURITUS
     Dosage: PO
     Route: 048
     Dates: start: 20110301, end: 20110816

REACTIONS (7)
  - TOXICITY TO VARIOUS AGENTS [None]
  - ANTINEUTROPHIL CYTOPLASMIC ANTIBODY POSITIVE [None]
  - BILIARY CIRRHOSIS [None]
  - HYPOTHYROIDISM [None]
  - HEPATITIS CHOLESTATIC [None]
  - RENAL FAILURE [None]
  - AUTOIMMUNE HEPATITIS [None]
